FAERS Safety Report 9062018 (Version 3)
Quarter: 2013Q3

REPORT INFORMATION
  Report Type: Spontaneous
  Country: JP (occurrence: None)
  Receive Date: 20130122
  Receipt Date: 20130812
  Transmission Date: 20140515
  Serious: Yes (Hospitalization)
  Sender: FDA-Public Use
  Company Number: TCI2012A05238

PATIENT
  Age: 76 Year
  Sex: Male

DRUGS (9)
  1. PREVACID [Suspect]
     Indication: PROSTATE CANCER
     Dosage: 600 MG (300 MG, 1 IN 1 D)
     Route: 048
     Dates: start: 20120410, end: 20120828
  2. TAKEPRON OD TABLETS 15 (LANSOPRAZOLE) [Suspect]
     Indication: GASTRITIS PROPHYLAXIS
     Route: 048
     Dates: start: 20120128
  3. PREDNISOLONE (PREDNISOLONE) [Suspect]
     Indication: PROSTATE CANCER
     Dosage: 10 MG (5 MG,2 IN 1 D)
     Route: 048
     Dates: start: 20100410
  4. OPALMON [Suspect]
     Indication: NEUROPATHY PERIPHERAL
     Dosage: 15 UG (5 UG,3 IN 1 D)
     Route: 048
     Dates: start: 20110831
  5. BAYASPIRIN (ACETYLSALICYLIC ACID) (ACETYLSALICYLIC ACID) [Suspect]
     Indication: THROMBOSIS PROPHYLAXIS
     Route: 048
     Dates: start: 20111020
  6. LASIX (FUROSEMIDE) [Suspect]
     Indication: OEDEMA
     Route: 048
     Dates: start: 20100918
  7. ALDACTONE A (SPIRONOLACTONE) [Suspect]
     Indication: OEDEMA
     Route: 048
     Dates: start: 20120321
  8. LOXONIN [Suspect]
     Indication: PAIN IN EXTREMITY
     Dosage: 180 MG (60 MG,3 IN 1 D)
     Dates: start: 20120224
  9. DALACIN [Suspect]
     Indication: OSTEOMYELITIS
     Route: 048
     Dates: start: 20120828, end: 20120911

REACTIONS (8)
  - Bronchopneumonia [None]
  - Amylase increased [None]
  - Bacillus test positive [None]
  - Lipase increased [None]
  - Pleural effusion [None]
  - Decreased appetite [None]
  - General physical health deterioration [None]
  - Stenotrophomonas test positive [None]
